FAERS Safety Report 15722324 (Version 1)
Quarter: 2018Q4

REPORT INFORMATION
  Report Type: Spontaneous
  Country: US (occurrence: US)
  Receive Date: 20181213
  Receipt Date: 20181213
  Transmission Date: 20190205
  Serious: Yes (Death)
  Sender: FDA-Public Use
  Company Number: None

PATIENT
  Age: 61 Year
  Sex: Male
  Weight: 85 kg

DRUGS (1)
  1. SORAFENIB [Suspect]
     Active Substance: SORAFENIB
     Indication: ACUTE MYELOID LEUKAEMIA (IN REMISSION)
     Route: 048
     Dates: start: 20170418, end: 20181210

REACTIONS (4)
  - Musculoskeletal pain [None]
  - Diarrhoea [None]
  - Cardiomyopathy [None]
  - Unresponsive to stimuli [None]

NARRATIVE: CASE EVENT DATE: 20181211
